FAERS Safety Report 8459791-5 (Version None)
Quarter: 2012Q2

REPORT INFORMATION
  Report Type: 
  Country: None (occurrence: None)
  Receive Date: 20120622
  Receipt Date: 20120614
  Transmission Date: 20120825
  Serious: Yes (Hospitalization)
  Sender: FDA-Public Use
  Company Number: PHHO2012DE008916

PATIENT
  Age: 59 Year
  Sex: Female
  Weight: 157 kg

DRUGS (3)
  1. PREDNISOLONE [Concomitant]
     Dosage: 5 MG, QD
     Route: 048
     Dates: start: 20120130
  2. MYCOPHENOLIC ACID [Suspect]
     Dosage: 720 MG, BID
     Route: 048
     Dates: start: 20120130
  3. PROGRAF [Concomitant]
     Dosage: 5 MG, BID
     Route: 048
     Dates: start: 20120130

REACTIONS (2)
  - URINARY TRACT DISORDER [None]
  - BLOOD CREATININE INCREASED [None]
